FAERS Safety Report 24255744 (Version 1)
Quarter: 2024Q3

REPORT INFORMATION
  Report Type: Spontaneous
  Country: US (occurrence: US)
  Receive Date: 20240827
  Receipt Date: 20240827
  Transmission Date: 20241017
  Serious: No
  Sender: SANOFI AVENTIS
  Company Number: US-SA-SAC20240820000869

PATIENT
  Age: 53 Year
  Sex: Female
  Weight: 70 kg

DRUGS (12)
  1. DUPIXENT [Suspect]
     Active Substance: DUPILUMAB
     Indication: Dermatitis atopic
     Dosage: 300 MG, QOW
     Route: 058
     Dates: start: 202305
  2. BOTOX [Concomitant]
     Active Substance: ONABOTULINUMTOXINA
  3. PROGESTERONE [Concomitant]
     Active Substance: PROGESTERONE
  4. ESTROGENS [Concomitant]
     Active Substance: ESTROGENS
  5. TESTOSTERONE [Concomitant]
     Active Substance: TESTOSTERONE
  6. CYANOCOBALAMIN [Concomitant]
     Active Substance: CYANOCOBALAMIN
  7. IBUPROFEN [Concomitant]
     Active Substance: IBUPROFEN
  8. TYLENOL [Concomitant]
     Active Substance: ACETAMINOPHEN
  9. VYVANSE [Concomitant]
     Active Substance: LISDEXAMFETAMINE DIMESYLATE
  10. MELOXICAM [Concomitant]
     Active Substance: MELOXICAM
  11. VITAMIN D NOS [Concomitant]
     Active Substance: CHOLECALCIFEROL\ERGOCALCIFEROL
  12. SINEMET [Concomitant]
     Active Substance: CARBIDOPA\LEVODOPA

REACTIONS (1)
  - Headache [Unknown]
